FAERS Safety Report 8353571-7 (Version None)
Quarter: 2012Q2

REPORT INFORMATION
  Report Type: 
  Country: None (occurrence: None)
  Receive Date: 20120511
  Receipt Date: 20110608
  Transmission Date: 20120825
  Serious: No
  Sender: FDA-Public Use
  Company Number: US-GLAXOSMITHKLINE-A0931805A

PATIENT
  Age: 57 Year
  Sex: Female
  Weight: 60.9 kg

DRUGS (3)
  1. HERCEPTIN [Concomitant]
  2. ATIVAN [Concomitant]
  3. TYKERB [Suspect]
     Indication: PRODUCT USED FOR UNKNOWN INDICATION
     Dosage: 750MG PER DAY
     Route: 048

REACTIONS (3)
  - ONYCHOCLASIS [None]
  - RHINORRHOEA [None]
  - ONYCHOMADESIS [None]
